FAERS Safety Report 7488971-0 (Version None)
Quarter: 2011Q1

REPORT INFORMATION
  Report Type: 
  Country: None (occurrence: None)
  Receive Date: 20110316
  Receipt Date: 20100927
  Transmission Date: 20110831
  Serious: Yes (Other)
  Sender: FDA-Public Use
  Company Number: 10-001389

PATIENT
  Age: 78 Year
  Sex: Female
  Weight: 77.1 kg

DRUGS (7)
  1. ESTRACE [Suspect]
     Indication: VULVOVAGINAL DISCOMFORT
     Dosage: VAGINAL
     Route: 067
     Dates: start: 20050101, end: 20090901
  2. LISINOPRIL [Concomitant]
  3. AMITRIPTYLINE (AMITRIPTYLINE PAMOATE) [Concomitant]
  4. NORVASC [Concomitant]
  5. SYNTHROID [Concomitant]
  6. ASPIRIN [Concomitant]
  7. XANAX [Concomitant]

REACTIONS (1)
  - BREAST CANCER [None]
